FAERS Safety Report 19218380 (Version 2)
Quarter: 2021Q2

REPORT INFORMATION
  Report Type: Spontaneous
  Country: DE (occurrence: DE)
  Receive Date: 20210505
  Receipt Date: 20210511
  Transmission Date: 20210717
  Serious: No
  Sender: FDA-Public Use
  Company Number: DE-009507513-2105DEU000543

PATIENT
  Age: 66 Year
  Sex: Female

DRUGS (1)
  1. PEMBROLIZUMAB. [Suspect]
     Active Substance: PEMBROLIZUMAB
     Indication: LUNG ADENOCARCINOMA
     Dosage: UNK
     Dates: start: 201905, end: 201907

REACTIONS (2)
  - Drug ineffective [Unknown]
  - Adverse drug reaction [Unknown]

NARRATIVE: CASE EVENT DATE: 2019
